FAERS Safety Report 6955772-9 (Version None)
Quarter: 2010Q3

REPORT INFORMATION
  Report Type: 
  Country: None (occurrence: None)
  Receive Date: 20100830
  Receipt Date: 20100823
  Transmission Date: 20110219
  Serious: Yes (Hospitalization)
  Sender: FDA-Public Use
  Company Number: US-ROCHE-720523

PATIENT
  Sex: Female
  Weight: 61.2 kg

DRUGS (5)
  1. TRASTUZUMAB [Suspect]
     Dosage: LAST DOSE : 30 JULY 2010
     Route: 041
     Dates: start: 20100618
  2. BEVACIZUMAB [Suspect]
     Route: 041
     Dates: start: 20100628
  3. BEVACIZUMAB [Suspect]
     Route: 041
     Dates: start: 20100709
  4. BEVACIZUMAB [Suspect]
     Route: 041
     Dates: start: 20100730
  5. TAXOTERE [Suspect]
     Dosage: LAST DOSE: 30 JULY 2010
     Route: 041
     Dates: start: 20100618

REACTIONS (2)
  - CHEST PAIN [None]
  - FEBRILE NEUTROPENIA [None]
